FAERS Safety Report 17825938 (Version 4)
Quarter: 2020Q2

REPORT INFORMATION
  Report Type: Spontaneous
  Country: PL (occurrence: PL)
  Receive Date: 20200526
  Receipt Date: 20200630
  Transmission Date: 20200714
  Serious: Yes (Disabling, Other)
  Sender: FDA-Public Use
  Company Number: PL-MYLANLABS-2020M1050523

PATIENT
  Age: 22 Year
  Sex: Female

DRUGS (11)
  1. LACOSAMIDE. [Interacting]
     Active Substance: LACOSAMIDE
     Indication: PARTIAL SEIZURES WITH SECONDARY GENERALISATION
     Dosage: INCREASE GRADUALLY UP TO 300 MG, THEN THE DOSE WAS INCREASED TO 450 MG FINALLY TO 500MG
  2. LAMOTRIGINE. [Interacting]
     Active Substance: LAMOTRIGINE
     Indication: AUTOMATISM EPILEPTIC
     Dosage: 250 MILLIGRAM, QD
  3. LEVETIRACETAM. [Interacting]
     Active Substance: LEVETIRACETAM
     Indication: EPILEPSY
     Dosage: 2500 MILLIGRAM, QD
  4. LAMOTRIGINE. [Interacting]
     Active Substance: LAMOTRIGINE
     Indication: SEIZURE
     Dosage: 300 MILLIGRAM, QD
  5. LACOSAMIDE. [Interacting]
     Active Substance: LACOSAMIDE
     Indication: SEIZURE
     Dosage: 300 MILLIGRAM, QD
  6. LACOSAMIDE. [Interacting]
     Active Substance: LACOSAMIDE
     Dosage: 500 MILLIGRAM, QD
  7. LACOSAMIDE. [Interacting]
     Active Substance: LACOSAMIDE
     Dosage: 450 MILLIGRAM, QD
  8. LACOSAMIDE. [Interacting]
     Active Substance: LACOSAMIDE
     Indication: EPILEPSY
     Dosage: GRADUALLY UP TO A DOSE OF 300 MG A DAY
  9. SERTRALINE [Concomitant]
     Active Substance: SERTRALINE HYDROCHLORIDE
     Indication: DEPRESSED MOOD
     Dosage: 50 MILLIGRAM, QD, IN THE MORNING
  10. LAMOTRIGINE. [Suspect]
     Active Substance: LAMOTRIGINE
     Indication: EPILEPSY
     Dosage: 200 MILLIGRAM, QD
  11. LEVETIRACETAM. [Interacting]
     Active Substance: LEVETIRACETAM
     Indication: SEIZURE
     Dosage: 1500 MILLIGRAM, QD

REACTIONS (7)
  - Therapeutic product effect incomplete [Recovered/Resolved]
  - Dizziness [Recovered/Resolved]
  - Off label use [Unknown]
  - Seizure [Recovering/Resolving]
  - Drug interaction [Recovered/Resolved]
  - Neurotoxicity [Recovered/Resolved]
  - Diplopia [Recovered/Resolved]
